FAERS Safety Report 6182969-0 (Version None)
Quarter: 2009Q2

REPORT INFORMATION
  Report Type: 
  Country: None (occurrence: None)
  Receive Date: 20090507
  Receipt Date: 20090506
  Transmission Date: 20091009
  Serious: Yes (Hospitalization)
  Sender: FDA-Public Use
  Company Number: US-BAYER-200825601NA

PATIENT
  Age: 76 Year
  Sex: Male

DRUGS (10)
  1. DACARBAZINE [Suspect]
     Indication: MALIGNANT MELANOMA
     Dosage: AS USED: 1759 MG
     Route: 042
     Dates: start: 20080107, end: 20080107
  2. IPILIMUMAB OR PLACEBO [Suspect]
     Indication: MALIGNANT MELANOMA
     Dosage: AS USED: 951 MG
     Route: 042
     Dates: start: 20080107, end: 20080107
  3. AVALIDE [Concomitant]
     Dates: start: 20061201
  4. SIMVASTATIN [Concomitant]
     Dates: start: 20061201
  5. FLOMAX [Concomitant]
     Dates: start: 20070118
  6. SYNTHROID [Concomitant]
     Dates: start: 20070301
  7. ASPIRIN [Concomitant]
     Dates: start: 20070101
  8. SENOKOT [Concomitant]
     Dates: start: 20070101
  9. CALCIUM [Concomitant]
     Dosage: TOTAL DAILY DOSE: 1500 MG
  10. VITAMIN D [Concomitant]
     Dosage: AS USED: 400 MG

REACTIONS (2)
  - DEHYDRATION [None]
  - SYNCOPE [None]
